FAERS Safety Report 8464256 (Version 8)
Quarter: 2012Q4

REPORT INFORMATION
  Report Type: 
  Country: US (occurrence: US)
  Receive Date: 20120316
  Receipt Date: 20121114
  Transmission Date: 20130627
  Serious: Yes (Hospitalization, Disabling, Other)
  Sender: FDA-Public Use
  Company Number: US-MERCK SHARP  DOHME-1111USA02613

PATIENT

DRUGS (4)
  1. FOSAMAX [Suspect]
     Indication: OSTEOPOROSIS
     Dosage: 70 mg, UNK
     Route: 048
     Dates: start: 1998, end: 20061029
  2. FOSAMAX [Suspect]
     Indication: OSTEOPENIA
     Dosage: 10 mg, UNK
     Route: 048
     Dates: start: 20000705, end: 20010905
  3. ACTONEL [Suspect]
     Indication: OSTEOPOROSIS
     Dosage: 35 mg, UNK
     Route: 048
     Dates: start: 200611, end: 2009
  4. ACTONEL [Suspect]
     Indication: OSTEOPENIA

REACTIONS (39)
  - Renal failure chronic [Unknown]
  - Mass [Unknown]
  - Osteonecrosis of jaw [Recovering/Resolving]
  - Sensitivity of teeth [Unknown]
  - Device failure [Unknown]
  - Device related infection [Unknown]
  - Dental fistula [Unknown]
  - Impaired healing [Unknown]
  - Jaw cyst [Unknown]
  - Osteoarthritis [Unknown]
  - Localised infection [Unknown]
  - Oral infection [Unknown]
  - Exostosis [Unknown]
  - Dental caries [Unknown]
  - Scarlet fever [Unknown]
  - Device failure [Unknown]
  - Device breakage [Unknown]
  - Tooth fracture [Unknown]
  - Tooth disorder [Unknown]
  - Upper respiratory tract infection [Unknown]
  - Tympanic membrane perforation [Unknown]
  - Muscle strain [Unknown]
  - Urinary tract infection [Unknown]
  - Bunion [Unknown]
  - Dermal cyst [Unknown]
  - Impaired healing [Unknown]
  - Synovial cyst [Unknown]
  - Otitis externa [Unknown]
  - Infected dermal cyst [Unknown]
  - Laryngitis [Recovering/Resolving]
  - Sinusitis [Unknown]
  - Arthropod bite [Unknown]
  - Alveolar osteitis [Unknown]
  - Exposed bone in jaw [Unknown]
  - Joint effusion [Not Recovered/Not Resolved]
  - Paraesthesia [Unknown]
  - Weight decreased [Unknown]
  - Vitamin B12 deficiency [Unknown]
  - Sialoadenitis [Not Recovered/Not Resolved]
